FAERS Safety Report 9591496 (Version 1)
Quarter: 2013Q4

REPORT INFORMATION
  Report Type: Spontaneous
  Country: US (occurrence: US)
  Receive Date: 20131003
  Receipt Date: 20131003
  Transmission Date: 20140711
  Serious: No
  Sender: FDA-Public Use
  Company Number: US-AMGEN-USASP2012082549

PATIENT
  Age: 56 Year
  Sex: Female
  Weight: 120.18 kg

DRUGS (15)
  1. ENBREL [Suspect]
     Indication: RHEUMATOID ARTHRITIS
     Dosage: 50 MG, QWK
     Route: 058
  2. PREDNISONE [Concomitant]
     Dosage: 1 MG, UNK
  3. GABAPENTIN [Concomitant]
     Dosage: 100 MG, UNK
  4. SUCRALFATE [Concomitant]
     Dosage: 1 G, UNK
  5. OMEPRAZOLE [Concomitant]
     Dosage: 10 MG, UNK
  6. LOSARTAN + HIDROCLOROTIAZIDA [Concomitant]
     Dosage: 100-12.5
  7. FENOFIBRATE [Concomitant]
     Dosage: 67 MG, UNK
  8. METOPROLOL [Concomitant]
     Dosage: 25 MG, UNK
  9. PROZAC [Concomitant]
     Dosage: 10 MG, UNK
  10. DILTIAZEM [Concomitant]
     Dosage: 360 MG/24 UNK
  11. VITAMIN D                          /00107901/ [Concomitant]
     Dosage: 1000 UNIT, UNK
  12. COLACE [Concomitant]
     Dosage: 50 MG, UNK
  13. VESICARE [Concomitant]
     Dosage: 5 MG, UNK
  14. FOLIC ACID [Concomitant]
     Dosage: UNK
  15. METHOTREXATE [Concomitant]
     Dosage: UNK, 50MG/2ML

REACTIONS (1)
  - Drug ineffective [Unknown]
